FAERS Safety Report 5472586-X (Version None)
Quarter: 2007Q4

REPORT INFORMATION
  Report Type: 
  Country: None (occurrence: None)
  Receive Date: 20071001
  Receipt Date: 20061005
  Transmission Date: 20080405
  Serious: No
  Sender: FDA-Public Use
  Company Number: US-ASTRAZENECA-2003UW05206

PATIENT
  Age: 72 Year
  Sex: Female
  Weight: 100 kg

DRUGS (4)
  1. ARIMIDEX [Suspect]
     Indication: BREAST CANCER
     Dates: start: 20011201
  2. TYLENOL (CAPLET) [Concomitant]
  3. NIACIN [Concomitant]
  4. VITAMINS [Concomitant]

REACTIONS (5)
  - BONE PAIN [None]
  - BREAST CYST [None]
  - HAIR GROWTH ABNORMAL [None]
  - OEDEMA PERIPHERAL [None]
  - SKIN REACTION [None]
